FAERS Safety Report 9629189 (Version 3)
Quarter: 2013Q4

REPORT INFORMATION
  Report Type: Report from Study
  Country: US (occurrence: US)
  Receive Date: 20131017
  Receipt Date: 20131204
  Transmission Date: 20140711
  Serious: Yes (Other)
  Sender: FDA-Public Use
  Company Number: US-VERTEX PHARMACEUTICALS INC-2013-010248

PATIENT
  Age: 19 Year
  Sex: Male
  Weight: 61.7 kg

DRUGS (20)
  1. VX-809 FDC [Suspect]
     Indication: CYSTIC FIBROSIS
     Dosage: 600 MG QAM
     Dates: start: 20130530
  2. VX-770 FDC [Suspect]
     Indication: CYSTIC FIBROSIS
     Dosage: 250 MG QAM
     Dates: start: 20130530
  3. VX-770 [Suspect]
     Indication: CYSTIC FIBROSIS
     Dosage: 250 MG QPM
     Dates: start: 20130530
  4. SYMBICORT [Concomitant]
     Indication: ASTHMA
     Dosage: 160/4.5 2 PUFFS BID
     Route: 055
  5. SYMBICORT [Concomitant]
     Indication: CYSTIC FIBROSIS
  6. SINGULAIR [Concomitant]
     Indication: ASTHMA
     Dosage: 10 MG, QD
     Route: 048
  7. AZITHROMYCIN [Concomitant]
     Indication: CYSTIC FIBROSIS
     Dosage: 500 MG MON/WED/FRI
     Route: 048
  8. OMEPRAZOLE [Concomitant]
     Indication: GASTROOESOPHAGEAL REFLUX DISEASE
     Dosage: 40 MG, QD
     Route: 048
  9. TOBI [Concomitant]
     Indication: CYSTIC FIBROSIS
     Dosage: 300 MG, QD
     Dates: end: 201306
  10. TOBI [Concomitant]
     Indication: CYSTIC FIBROSIS LUNG
     Dosage: 300 MG, BID
     Route: 048
     Dates: start: 20130325, end: 20130419
  11. TOBI [Concomitant]
     Dosage: 300 MG, QD
     Route: 055
     Dates: start: 20130603, end: 20130628
  12. TOBI [Concomitant]
     Dosage: 112 MG, BID
     Route: 055
     Dates: start: 20130814, end: 20130910
  13. VITAMIN D3 [Concomitant]
     Indication: PANCREATIC INSUFFICIENCY
     Dosage: 2000 UNITS QD
     Route: 048
     Dates: start: 2013
  14. PULMOZYME [Concomitant]
     Indication: CYSTIC FIBROSIS
     Dosage: 1 MG, UNK
     Route: 055
  15. XOPENEX [Concomitant]
     Indication: ASTHMA
     Dosage: 0.63 MG Q4-6 HRS PRN
     Route: 055
  16. XOPENEX [Concomitant]
     Indication: CYSTIC FIBROSIS
  17. ZYRTEC [Concomitant]
     Indication: SEASONAL ALLERGY
     Dosage: 10 MG, QD
     Route: 048
  18. SOURCECF [Concomitant]
     Indication: NUTRITIONAL SUPPLEMENTATION
     Dosage: 2 DF, QD
     Route: 048
     Dates: start: 201303
  19. ZENPEP [Concomitant]
     Indication: PANCREATIC INSUFFICIENCY
     Dosage: 2000 UNITS QD
     Route: 048
     Dates: start: 2010
  20. VENTOLIN HFA [Concomitant]
     Indication: ASTHMA
     Dosage: UNK, PRN
     Route: 055

REACTIONS (1)
  - Nephrolithiasis [Recovered/Resolved]
